FAERS Safety Report 4353290-8 (Version None)
Quarter: 2004Q2

REPORT INFORMATION
  Report Type: 
  Country: None (occurrence: None)
  Receive Date: 20040504
  Receipt Date: 20040504
  Transmission Date: 20050107
  Serious: Yes (Other)
  Sender: FDA-Public Use
  Company Number: None

PATIENT
  Age: 58 Year
  Sex: Male
  Weight: 69.355 kg

DRUGS (14)
  1. IRINOTECAN 100MG/5ML PHARMACIA + UPJOHN [Suspect]
     Indication: PANCREATIC CARCINOMA METASTATIC
     Dosage: 160MG/M2 Q21DAYS INTRAVENOUS
     Route: 042
     Dates: start: 20040331, end: 20040421
  2. DOCETAXEL 80 MG/2ML AVENTIS [Suspect]
     Indication: PANCREATIC CARCINOMA METASTATIC
     Dosage: 65MG/M2 Q21DAYS INTRAVENOUS
     Route: 042
     Dates: start: 20040331, end: 20040421
  3. ZYDONE [Concomitant]
  4. SENOKOT [Concomitant]
  5. PANCREASE [Concomitant]
  6. ATIVAN [Concomitant]
  7. COMPAZINE [Concomitant]
  8. NORCO [Concomitant]
  9. GLYBURIDE [Concomitant]
  10. ZOFRAN [Concomitant]
  11. DURAGESIC [Concomitant]
  12. DECADRON [Concomitant]
  13. KYTRIL [Concomitant]
  14. AMBIEN [Concomitant]

REACTIONS (3)
  - BLOOD SODIUM ABNORMAL [None]
  - FATIGUE [None]
  - NEUTROPENIA [None]
